FAERS Safety Report 24278768 (Version 1)
Quarter: 2024Q3

REPORT INFORMATION
  Report Type: Spontaneous
  Country: US (occurrence: None)
  Receive Date: 20240831
  Receipt Date: 20240831
  Transmission Date: 20241017
  Serious: Yes (Death, Life-Threatening, Hospitalization, Disabling)
  Sender: Public
  Company Number: None

PATIENT
  Age: 93 Year
  Sex: Male
  Weight: 79.2 kg

DRUGS (5)
  1. ERLEADA [Suspect]
     Active Substance: APALUTAMIDE
     Indication: Prostate cancer
     Dosage: 4 TABLET DAILY ORAL
     Route: 048
     Dates: start: 20240505, end: 20240823
  2. AMLODIPINE [Concomitant]
     Active Substance: AMLODIPINE BESYLATE
  3. LISINOPRIL [Concomitant]
     Active Substance: LISINOPRIL
  4. HS ASA [Concomitant]
  5. Presivision [Concomitant]

REACTIONS (10)
  - Blood pressure systolic increased [None]
  - Arthralgia [None]
  - Myocardial necrosis marker increased [None]
  - Acute myocardial infarction [None]
  - Ejection fraction decreased [None]
  - Eye movement disorder [None]
  - Agonal respiration [None]
  - Cerebrovascular accident [None]
  - Cardiac arrest [None]
  - Product communication issue [None]

NARRATIVE: CASE EVENT DATE: 20240825
